FAERS Safety Report 16073848 (Version 2)
Quarter: 2020Q1

REPORT INFORMATION
  Report Type: Spontaneous
  Country: US (occurrence: US)
  Receive Date: 20190314
  Receipt Date: 20200325
  Transmission Date: 20200409
  Serious: Yes (Hospitalization, Other)
  Sender: FDA-Public Use
  Company Number: US-BAYER-2019-047624

PATIENT
  Age: 51 Year
  Sex: Female

DRUGS (4)
  1. ACETYLSALICYLIC ACID (CARDIO) [Interacting]
     Active Substance: ASPIRIN
     Indication: CARDIAC FAILURE
  2. CLOPIDOGREL [Interacting]
     Active Substance: CLOPIDOGREL BISULFATE
     Indication: ANTIPLATELET THERAPY
  3. ACETYLSALICYLIC ACID (CARDIO) [Suspect]
     Active Substance: ASPIRIN
     Indication: ANTIPLATELET THERAPY
  4. CLOPIDOGREL [Interacting]
     Active Substance: CLOPIDOGREL BISULFATE
     Indication: CARDIAC FAILURE

REACTIONS (5)
  - Device dislocation [Recovered/Resolved]
  - Implant site haematoma [Recovered/Resolved]
  - Implant site haemorrhage [Recovered/Resolved]
  - Device inappropriate shock delivery [Recovered/Resolved]
  - Labelled drug-drug interaction medication error [None]
